FAERS Safety Report 19154988 (Version 1)
Quarter: 2021Q2

REPORT INFORMATION
  Report Type: Other
  Country: US (occurrence: US)
  Receive Date: 20210419
  Receipt Date: 20210419
  Transmission Date: 20210717
  Serious: No
  Sender: FDA-Public Use
  Company Number: US-AMAG PHARMACEUTICALS, INC.-AMAG202100848

PATIENT
  Age: 20 Year
  Sex: Female
  Weight: 81.72 kg

DRUGS (1)
  1. MAKENA [Suspect]
     Active Substance: HYDROXYPROGESTERONE CAPROATE
     Indication: PREMATURE DELIVERY
     Route: 058

REACTIONS (7)
  - Injection site swelling [Unknown]
  - Nasal congestion [Unknown]
  - Injection site irritation [Unknown]
  - Product dose omission issue [Unknown]
  - Injection site erythema [Unknown]
  - Infection [Unknown]
  - Oropharyngeal pain [Unknown]
